FAERS Safety Report 10202399 (Version 1)
Quarter: 2014Q2

REPORT INFORMATION
  Report Type: Spontaneous
  Country: FR (occurrence: FR)
  Receive Date: 20140528
  Receipt Date: 20140528
  Transmission Date: 20141212
  Serious: Yes (Hospitalization)
  Sender: FDA-Public Use
  Company Number: FR-SA-2014SA063383

PATIENT
  Age: 60 Year
  Sex: Male

DRUGS (26)
  1. TAXOTERE [Suspect]
     Indication: PRODUCT USED FOR UNKNOWN INDICATION
     Dosage: DOSE: 110 MG PER COURSE
     Route: 065
     Dates: start: 201402
  2. SOLUPRED [Suspect]
     Indication: PRODUCT USED FOR UNKNOWN INDICATION
     Route: 065
  3. SOLUPRED [Suspect]
     Indication: PRODUCT USED FOR UNKNOWN INDICATION
     Route: 065
  4. CARBOPLATIN [Suspect]
     Indication: PRODUCT USED FOR UNKNOWN INDICATION
     Dosage: DOSE: 330 MG PER COURSE
     Route: 065
     Dates: start: 201402
  5. 5-FU [Suspect]
     Indication: PRODUCT USED FOR UNKNOWN INDICATION
     Dosage: DOSE: 1075 MG DAY1 TO DAY5.
     Route: 065
     Dates: start: 201402
  6. EMEND [Suspect]
     Indication: PRODUCT USED FOR UNKNOWN INDICATION
     Route: 065
     Dates: start: 201402
  7. ZOPHREN [Suspect]
     Indication: PRODUCT USED FOR UNKNOWN INDICATION
     Route: 065
     Dates: start: 201402
  8. METHYLPREDNISOLONE [Suspect]
     Indication: PRODUCT USED FOR UNKNOWN INDICATION
     Route: 065
     Dates: start: 201402
  9. CELLCEPT [Suspect]
     Indication: PRODUCT USED FOR UNKNOWN INDICATION
     Route: 065
     Dates: end: 201402
  10. ZARZIO [Concomitant]
     Dates: start: 20130227, end: 20140303
  11. MOPRAL [Concomitant]
  12. ATENOLOL [Concomitant]
  13. AMLODIPINE [Concomitant]
  14. COMBIGAN [Concomitant]
     Dosage: DROPS
  15. TRIATEC [Concomitant]
  16. IMOVANE [Concomitant]
  17. TRUSOPT [Concomitant]
     Dosage: DROPS
  18. MAG 2 [Concomitant]
  19. VITAMIN C [Concomitant]
  20. SPECIAFOLDINE [Concomitant]
  21. ALDACTONE [Concomitant]
  22. DOLIPRANE [Concomitant]
     Dosage: IF NEEDED 4 TABLETS DAILY
  23. LYRICA [Concomitant]
  24. ALPRAZOLAM [Concomitant]
     Dosage: IF NEEDED THREE TIMES DAILY
  25. HYPERIUM [Concomitant]
  26. HYPERIUM [Concomitant]
     Dosage: DOSE REDUCED

REACTIONS (6)
  - Hypokalaemia [Recovered/Resolved]
  - Lymphopenia [Unknown]
  - Atrial fibrillation [Recovered/Resolved]
  - Febrile neutropenia [Recovered/Resolved]
  - Diarrhoea [Recovered/Resolved]
  - Thrombocytopenia [Recovered/Resolved]
